FAERS Safety Report 17396860 (Version 2)
Quarter: 2021Q2

REPORT INFORMATION
  Report Type: Spontaneous
  Country: US (occurrence: US)
  Receive Date: 20200210
  Receipt Date: 20210412
  Transmission Date: 20210716
  Serious: No
  Sender: FDA-Public Use
  Company Number: US-PFIZER INC-2020054418

PATIENT
  Age: 60 Year
  Sex: Female

DRUGS (8)
  1. LAMOTRIGINE. [Concomitant]
     Active Substance: LAMOTRIGINE
     Dosage: UNK
  2. XELJANZ XR [Suspect]
     Active Substance: TOFACITINIB CITRATE
     Indication: RHEUMATOID ARTHRITIS
     Dosage: 11 MG, DAILY
     Route: 048
     Dates: start: 20180701
  3. CARDIZEM [DILTIAZEM HYDROCHLORIDE] [Concomitant]
     Active Substance: DILTIAZEM HYDROCHLORIDE
     Dosage: UNK
  4. TIZANIDINE. [Concomitant]
     Active Substance: TIZANIDINE
     Dosage: UNK
  5. LIPITOR [Concomitant]
     Active Substance: ATORVASTATIN CALCIUM
     Dosage: UNK
  6. LEXAPRO [Concomitant]
     Active Substance: ESCITALOPRAM OXALATE
     Dosage: UNK
  7. LASIX [Concomitant]
     Active Substance: FUROSEMIDE
     Dosage: UNK
  8. MELOXICAM. [Concomitant]
     Active Substance: MELOXICAM
     Dosage: UNK

REACTIONS (3)
  - Condition aggravated [Unknown]
  - Influenza like illness [Recovered/Resolved]
  - Cough [Recovered/Resolved]
